FAERS Safety Report 23132478 (Version 1)
Quarter: 2023Q4

REPORT INFORMATION
  Report Type: Spontaneous
  Country: US (occurrence: US)
  Receive Date: 20231101
  Receipt Date: 20231101
  Transmission Date: 20240110
  Serious: Yes (Hospitalization, Other)
  Sender: FDA-Public Use
  Company Number: US-AMGEN-USASP2023190795

PATIENT

DRUGS (1)
  1. APREMILAST [Suspect]
     Active Substance: APREMILAST
     Indication: Product used for unknown indication
     Dosage: UNK
     Route: 065

REACTIONS (9)
  - Cardiovascular disorder [Unknown]
  - Endocrine disorder [Unknown]
  - Mental disorder [Unknown]
  - Seasonal allergy [Unknown]
  - Neoplasm malignant [Unknown]
  - Asthma [Unknown]
  - Nephropathy [Unknown]
  - Blood disorder [Unknown]
  - Liver disorder [Unknown]
